FAERS Safety Report 4500797-6 (Version None)
Quarter: 2004Q4

REPORT INFORMATION
  Report Type: 
  Country: None (occurrence: None)
  Receive Date: 20041109
  Receipt Date: 20041028
  Transmission Date: 20050328
  Serious: Yes (Hospitalization)
  Sender: FDA-Public Use
  Company Number: 210015

PATIENT
  Age: 49 Year
  Sex: Male
  Weight: 88.4 kg

DRUGS (5)
  1. AVASTIN [Suspect]
     Indication: COLORECTAL CANCER METASTATIC
     Dosage: 5 MG/KG, Q2W, INTRAVENOUS
     Route: 042
     Dates: start: 20040617
  2. FLUOROURACIL [Suspect]
     Indication: COLORECTAL CANCER METASTATIC
     Dosage: INTRAVENOUS
     Route: 042
     Dates: start: 20040617
  3. LEUCOVORIN (LEUCOVORIN CALCIUM) [Suspect]
     Indication: COLORECTAL CANCER METASTATIC
     Dosage: INTRAVENOUS
     Route: 042
     Dates: start: 20040617
  4. XELODA [Suspect]
     Indication: COLORECTAL CANCER METASTATIC
     Dosage: ORAL
     Route: 048
     Dates: start: 20040617
  5. OXALIPLATIN [Suspect]
     Dosage: INTRAVENOUS
     Route: 042

REACTIONS (9)
  - CATHETER RELATED COMPLICATION [None]
  - CHILLS [None]
  - DRUG INTERACTION [None]
  - ILEITIS [None]
  - INTERNATIONAL NORMALISED RATIO INCREASED [None]
  - MALNUTRITION [None]
  - NEUTROPHIL COUNT DECREASED [None]
  - PYREXIA [None]
  - TREMOR [None]
